FAERS Safety Report 7161330-6 (Version None)
Quarter: 2010Q4

REPORT INFORMATION
  Report Type: 
  Country: None (occurrence: None)
  Receive Date: 20101215
  Receipt Date: 20101209
  Transmission Date: 20110411
  Serious: Yes (Other)
  Sender: FDA-Public Use
  Company Number: DE-PFIZER INC-2010149018

PATIENT
  Age: 71 Year
  Sex: Male
  Weight: 100 kg

DRUGS (2)
  1. DETRUSITOL [Suspect]
     Indication: MICTURITION URGENCY
     Dosage: 2 MG, 1X/DAY
     Route: 048
     Dates: start: 20101107, end: 20101101
  2. DETRUSITOL [Suspect]
     Indication: POLLAKIURIA

REACTIONS (6)
  - CHEST DISCOMFORT [None]
  - DYSPNOEA [None]
  - HEART RATE INCREASED [None]
  - MUSCULOSKELETAL DISCOMFORT [None]
  - PALPITATIONS [None]
  - SENSATION OF HEAVINESS [None]
